FAERS Safety Report 11383676 (Version 1)
Quarter: 2015Q3

REPORT INFORMATION
  Report Type: Spontaneous
  Country: FR (occurrence: FR)
  Receive Date: 20150814
  Receipt Date: 20150814
  Transmission Date: 20151125
  Serious: Yes (Death)
  Sender: FDA-Public Use
  Company Number: FR-IMPAX LABORATORIES, INC-2015-IPXL-00821

PATIENT
  Age: 26 Year
  Sex: Male

DRUGS (1)
  1. DOXYCYCLINE HYCLATE DELAYED RELEASE [Suspect]
     Active Substance: DOXYCYCLINE HYCLATE
     Indication: MALARIA PROPHYLAXIS
     Dosage: UNK
     Route: 065
     Dates: start: 2014

REACTIONS (1)
  - Drug ineffective [Fatal]
